FAERS Safety Report 5611209-3 (Version None)
Quarter: 2008Q1

REPORT INFORMATION
  Report Type: 
  Country: None (occurrence: None)
  Receive Date: 20080129
  Receipt Date: 20080118
  Transmission Date: 20080703
  Serious: Yes (Hospitalization)
  Sender: FDA-Public Use
  Company Number: 2007SP025328

PATIENT
  Age: 51 Year
  Sex: Female
  Weight: 81.6475 kg

DRUGS (2)
  1. PEG-INTRON [Suspect]
     Indication: HEPATITIS C
     Dosage: 150 MCG;QW,SC, 150 MCG;QW
     Route: 058
     Dates: start: 20070712, end: 20080103
  2. RIBAVIRIN [Suspect]
     Indication: HEPATITIS C
     Dosage: PO
     Route: 048
     Dates: start: 20070712, end: 20080103

REACTIONS (26)
  - ALOPECIA [None]
  - ANGER [None]
  - ANOREXIA [None]
  - ARTHRITIS [None]
  - ASTHENIA [None]
  - BACTERIAL INFECTION [None]
  - CANDIDIASIS [None]
  - CLOSTRIDIUM DIFFICILE COLITIS [None]
  - CONDITION AGGRAVATED [None]
  - DEHYDRATION [None]
  - DEPRESSION [None]
  - EAR PAIN [None]
  - EPISTAXIS [None]
  - FACIAL PAIN [None]
  - LYMPHADENOPATHY [None]
  - NAUSEA [None]
  - NERVOUSNESS [None]
  - ORAL INTAKE REDUCED [None]
  - PAIN [None]
  - PAROTID GLAND ENLARGEMENT [None]
  - PHARYNGOLARYNGEAL PAIN [None]
  - PYREXIA [None]
  - RANULA [None]
  - TRICHOTILLOMANIA [None]
  - WEIGHT DECREASED [None]
  - WHITE BLOOD CELL COUNT DECREASED [None]
